FAERS Safety Report 4467625-9 (Version None)
Quarter: 2004Q4

REPORT INFORMATION
  Report Type: 
  Country: None (occurrence: None)
  Receive Date: 20041004
  Receipt Date: 20041004
  Transmission Date: 20050328
  Serious: Yes (Other)
  Sender: FDA-Public Use
  Company Number: None

PATIENT
  Age: 13 Year
  Sex: Female
  Weight: 56.6996 kg

DRUGS (2)
  1. VANCOMYCIN [Suspect]
     Indication: LOWER LIMB FRACTURE
     Dosage: 750MG Q12
     Dates: start: 20040930, end: 20041001
  2. VANCOMYCIN [Suspect]

REACTIONS (2)
  - ERYTHEMA [None]
  - SKIN DISORDER [None]
